FAERS Safety Report 8548108-3 (Version None)
Quarter: 2012Q3

REPORT INFORMATION
  Report Type: 
  Country: None (occurrence: None)
  Receive Date: 20120730
  Receipt Date: 20120720
  Transmission Date: 20120928
  Serious: No
  Sender: FDA-Public Use
  Company Number: US-009507513-1206USA02938

PATIENT

DRUGS (2)
  1. PRANDIN [Concomitant]
  2. JANUVIA [Suspect]
     Route: 048

REACTIONS (1)
  - ALOPECIA [None]
